FAERS Safety Report 24236816 (Version 2)
Quarter: 2024Q3

REPORT INFORMATION
  Report Type: Report from Study
  Country: DE (occurrence: DE)
  Receive Date: 20240822
  Receipt Date: 20240910
  Transmission Date: 20241016
  Serious: No
  Sender: CSL BEHRING
  Company Number: DE-BEH-2024177428

PATIENT
  Sex: Male
  Weight: 115 kg

DRUGS (10)
  1. PRIVIGEN [Suspect]
     Active Substance: HUMAN IMMUNOGLOBULIN G
     Dosage: 20 G
     Route: 042
     Dates: start: 20240606
  2. PRIVIGEN [Suspect]
     Active Substance: HUMAN IMMUNOGLOBULIN G
     Dosage: 20 G
     Route: 042
     Dates: start: 20240704
  3. PRIVIGEN [Suspect]
     Active Substance: HUMAN IMMUNOGLOBULIN G
     Dosage: 20 G
     Route: 042
     Dates: start: 20240801
  4. BISOPROLOL FUMARATE [Concomitant]
     Active Substance: BISOPROLOL FUMARATE
  5. ENTOCORT [Concomitant]
     Active Substance: BUDESONIDE
  6. LOPERAMIDE [Concomitant]
     Active Substance: LOPERAMIDE
  7. ALLOPURINOL [Concomitant]
     Active Substance: ALLOPURINOL
  8. CODEINE [Concomitant]
     Active Substance: CODEINE
  9. ZOMETA [Concomitant]
     Active Substance: ZOLEDRONIC ACID
  10. BENDAMUSTINE [Concomitant]
     Active Substance: BENDAMUSTINE

REACTIONS (1)
  - Chronic lymphocytic leukaemia [Fatal]
